FAERS Safety Report 14661400 (Version 3)
Quarter: 2018Q4

REPORT INFORMATION
  Report Type: Report from Study
  Country: US (occurrence: US)
  Receive Date: 20180320
  Receipt Date: 20181230
  Transmission Date: 20190204
  Serious: Yes (Other)
  Sender: FDA-Public Use
  Company Number: PHEH2018US009276

PATIENT
  Sex: Female

DRUGS (1)
  1. OMNITROPE [Suspect]
     Active Substance: SOMATROPIN
     Indication: PRODUCT USED FOR UNKNOWN INDICATION
     Route: 065

REACTIONS (9)
  - Spinal cord injury [Unknown]
  - Pain [Unknown]
  - Influenza [Unknown]
  - Seizure [Unknown]
  - Pneumonia [Unknown]
  - Insomnia [Unknown]
  - Abdominal pain [Unknown]
  - Hydrocephalus [Unknown]
  - Dehydration [Unknown]
